FAERS Safety Report 4506585-9 (Version None)
Quarter: 2004Q4

REPORT INFORMATION
  Report Type: 
  Country: None (occurrence: None)
  Receive Date: 20041122
  Receipt Date: 20040810
  Transmission Date: 20050328
  Serious: Yes (Hospitalization, Other)
  Sender: FDA-Public Use
  Company Number: PHBS2004JP10537

PATIENT
  Age: 62 Year
  Sex: Male
  Weight: 53 kg

DRUGS (4)
  1. LAMISIL [Suspect]
     Indication: NAIL TINEA
     Dosage: 125 MG/D
     Route: 048
     Dates: start: 20040628, end: 20040803
  2. KALLIANT [Suspect]
     Indication: ANGINA PECTORIS
     Dosage: 20 MG/DAY
     Route: 048
  3. ASTAT [Suspect]
     Route: 061
     Dates: start: 20040628, end: 20040801
  4. NITRODERM [Suspect]
     Route: 062

REACTIONS (14)
  - ABDOMINAL DISCOMFORT [None]
  - ALANINE AMINOTRANSFERASE INCREASED [None]
  - ASPARTATE AMINOTRANSFERASE INCREASED [None]
  - BLOOD ALKALINE PHOSPHATASE INCREASED [None]
  - BLOOD BILIRUBIN INCREASED [None]
  - BLOOD GLUCOSE INCREASED [None]
  - BLOOD LACTATE DEHYDROGENASE INCREASED [None]
  - BLOOD POTASSIUM DECREASED [None]
  - CHROMATURIA [None]
  - GAMMA-GLUTAMYLTRANSFERASE INCREASED [None]
  - HEADACHE [None]
  - JAUNDICE [None]
  - LIVER DISORDER [None]
  - MALAISE [None]
